FAERS Safety Report 8793164 (Version 2)
Quarter: 2012Q4

REPORT INFORMATION
  Report Type: 
  Country: US (occurrence: US)
  Receive Date: 20120917
  Receipt Date: 20121005
  Transmission Date: 20130627
  Serious: No
  Sender: FDA-Public Use
  Company Number: US-PFIZER INC-2012228374

PATIENT
  Age: 19 Year
  Sex: Male

DRUGS (4)
  1. ADVIL [Suspect]
     Indication: TOOTHACHE
     Dosage: UNK
  2. ADVIL [Suspect]
     Indication: ORAL PAIN
  3. ADVIL MIGRAINE [Suspect]
     Indication: TOOTHACHE
     Dosage: UNK
  4. ADVIL MIGRAINE [Suspect]
     Indication: ORAL PAIN

REACTIONS (5)
  - Incorrect dose administered [Unknown]
  - Hypersensitivity [Unknown]
  - Dysgeusia [Unknown]
  - Gingival inflammation [Unknown]
  - Swelling face [Recovered/Resolved]
